FAERS Safety Report 7608586-0 (Version None)
Quarter: 2011Q3

REPORT INFORMATION
  Report Type: 
  Country: None (occurrence: None)
  Receive Date: 20110714
  Receipt Date: 20110711
  Transmission Date: 20111222
  Serious: Yes (Death)
  Sender: FDA-Public Use
  Company Number: PHHY2011CA12148

PATIENT
  Sex: Male

DRUGS (1)
  1. SANDOSTATIN LAR [Suspect]
     Indication: NEUROENDOCRINE TUMOUR
     Dosage: 20 MG, QW2
     Route: 030
     Dates: start: 20070109

REACTIONS (3)
  - ABDOMINAL PAIN [None]
  - DEATH [None]
  - BLOOD PRESSURE ABNORMAL [None]
